FAERS Safety Report 6508657-6 (Version None)
Quarter: 2009Q4

REPORT INFORMATION
  Report Type: 
  Country: None (occurrence: None)
  Receive Date: 20091221
  Receipt Date: 20090720
  Transmission Date: 20100525
  Serious: No
  Sender: FDA-Public Use
  Company Number: US-ASTRAZENECA-2009SE05328

PATIENT
  Age: 20824 Day
  Sex: Female

DRUGS (1)
  1. CRESTOR [Suspect]
     Route: 048
     Dates: start: 20090715

REACTIONS (3)
  - ASTHENOPIA [None]
  - EYE PAIN [None]
  - OCULAR DISCOMFORT [None]
